FAERS Safety Report 4952512-X (Version None)
Quarter: 2006Q1

REPORT INFORMATION
  Report Type: 
  Country: None (occurrence: None)
  Receive Date: 20060323
  Receipt Date: 20060314
  Transmission Date: 20060701
  Serious: Yes (Hospitalization)
  Sender: FDA-Public Use
  Company Number: US-BRISTOL-MYERS SQUIBB COMPANY-13314687

PATIENT
  Age: 50 Year
  Sex: Male
  Weight: 102 kg

DRUGS (15)
  1. COUMADIN [Suspect]
     Indication: DEEP VEIN THROMBOSIS
     Dates: start: 20060303
  2. COUMADIN [Suspect]
     Indication: PULMONARY EMBOLISM
     Dates: start: 20060303
  3. LEVOFLOXACIN [Concomitant]
  4. PERCOCET [Concomitant]
  5. HYDRALAZINE [Concomitant]
  6. PANTOPRAZOLE [Concomitant]
  7. NEUTRA-PHOS [Concomitant]
  8. ZOCOR [Concomitant]
  9. ASPIRIN [Concomitant]
  10. TYLENOL (CAPLET) [Concomitant]
  11. INSULIN SLIDING SCALE [Concomitant]
  12. NPH INSULIN [Concomitant]
  13. LISINOPRIL [Concomitant]
  14. METOPROLOL [Concomitant]
  15. VANCOMYCIN [Concomitant]

REACTIONS (1)
  - SCROTAL SWELLING [None]
